FAERS Safety Report 5959605-9 (Version None)
Quarter: 2008Q4

REPORT INFORMATION
  Report Type: 
  Country: None (occurrence: None)
  Receive Date: 20081120
  Receipt Date: 20081111
  Transmission Date: 20090506
  Serious: Yes (Death, Hospitalization)
  Sender: FDA-Public Use
  Company Number: BR-AMGEN-US318840

PATIENT
  Age: 10 Year
  Sex: Female
  Weight: 20 kg

DRUGS (3)
  1. ENBREL [Suspect]
     Indication: JUVENILE ARTHRITIS
     Route: 058
     Dates: start: 20080601, end: 20081001
  2. IBUPROFEN TABLETS [Concomitant]
     Dosage: UNKNOWN
     Route: 065
     Dates: end: 20081001
  3. PREDNISONE TAB [Concomitant]
     Route: 065
     Dates: end: 20081001

REACTIONS (6)
  - CARDIAC ARREST [None]
  - CHEST PAIN [None]
  - FATIGUE [None]
  - INSOMNIA [None]
  - PYREXIA [None]
  - SEPSIS [None]
